FAERS Safety Report 8343347-9 (Version None)
Quarter: 2012Q2

REPORT INFORMATION
  Report Type: 
  Country: None (occurrence: None)
  Receive Date: 20120508
  Receipt Date: 20120427
  Transmission Date: 20120825
  Serious: Yes (Hospitalization)
  Sender: FDA-Public Use
  Company Number: JP-EISAI INC-E7389-01389-SPO-JP

PATIENT
  Age: 56 Year
  Sex: Female
  Weight: 65 kg

DRUGS (8)
  1. HALAVEN [Suspect]
     Indication: METASTASES TO LUNG
  2. LEVOFLOXACIN [Concomitant]
  3. CLARITHROMYCIN [Concomitant]
     Route: 048
  4. PL (NON-PYRINE COLD PREPARATION) [Concomitant]
     Route: 048
  5. HALAVEN [Suspect]
     Indication: METASTASES TO BONE
  6. BROCIN CODEINE [Concomitant]
     Route: 048
  7. HALAVEN [Suspect]
  8. HALAVEN [Suspect]
     Indication: BREAST CANCER RECURRENT
     Route: 042
     Dates: start: 20110804

REACTIONS (1)
  - PLEURAL EFFUSION [None]
